FAERS Safety Report 9820046 (Version 1)
Quarter: 2014Q1

REPORT INFORMATION
  Report Type: Spontaneous
  Country: US (occurrence: None)
  Receive Date: 20140113
  Receipt Date: 20140113
  Transmission Date: 20141002
  Serious: Yes (Other)
  Sender: FDA-Public Use
  Company Number: None

PATIENT
  Age: 49 Year
  Sex: Female
  Weight: 81.65 kg

DRUGS (3)
  1. MONTELUKAST [Suspect]
     Indication: SINUS HEADACHE
     Dosage: AT BEDTIME, TAKEN BY MOUTH
     Dates: start: 20131201, end: 20140111
  2. MONTELUKAST [Suspect]
     Indication: HYPERSENSITIVITY
     Dosage: AT BEDTIME, TAKEN BY MOUTH
     Dates: start: 20131201, end: 20140111
  3. MONTELUKAST [Suspect]
     Indication: HYPERSENSITIVITY
     Dosage: AT BEDTIME, TAKEN BY MOUTH
     Dates: start: 20131001, end: 20131231

REACTIONS (9)
  - Hypersensitivity [None]
  - Disease recurrence [None]
  - Drug ineffective [None]
  - Product quality issue [None]
  - Product substitution issue [None]
  - Headache [None]
  - Fatigue [None]
  - Asthenia [None]
  - Poor quality sleep [None]
